FAERS Safety Report 17388754 (Version 2)
Quarter: 2020Q1

REPORT INFORMATION
  Report Type: Other
  Country: ES (occurrence: ES)
  Receive Date: 20200206
  Receipt Date: 20200219
  Transmission Date: 20200409
  Serious: Yes (Death, Life-Threatening, Hospitalization, Other)
  Sender: FDA-Public Use
  Company Number: ES-CELLTRION INC.-2020ES018974

PATIENT

DRUGS (4)
  1. MYCOPHENOLATE [Suspect]
     Active Substance: MYCOPHENOLIC ACID
     Indication: PNEUMONITIS
     Dosage: UNK
     Route: 065
     Dates: start: 20191127
  2. PEMBROLIZUMAB. [Suspect]
     Active Substance: PEMBROLIZUMAB
     Indication: LUNG NEOPLASM MALIGNANT
     Dosage: UNK
     Route: 065
     Dates: start: 20190926, end: 20191021
  3. INFLIXIMAB (UNKNOWN) [Suspect]
     Active Substance: INFLIXIMAB
     Indication: PNEUMONITIS
     Dosage: UNK
     Route: 042
     Dates: start: 20191114
  4. KEYTRUDA [Suspect]
     Active Substance: PEMBROLIZUMAB
     Indication: NON-SMALL CELL LUNG CANCER
     Dosage: 200 MG EVERY 21 DAYS
     Dates: start: 20190926, end: 20191021

REACTIONS (8)
  - Product use in unapproved indication [Fatal]
  - Disease progression [Fatal]
  - Agitation [Fatal]
  - Off label use [Fatal]
  - Malignant neoplasm progression [Fatal]
  - Immune-mediated pneumonitis [Fatal]
  - Epistaxis [Fatal]
  - Lung neoplasm malignant [Fatal]

NARRATIVE: CASE EVENT DATE: 2019
